FAERS Safety Report 17666432 (Version 1)
Quarter: 2020Q2

REPORT INFORMATION
  Report Type: Spontaneous
  Country: US (occurrence: US)
  Receive Date: 20200414
  Receipt Date: 20200414
  Transmission Date: 20200713
  Serious: Yes (Other)
  Sender: FDA-Public Use
  Company Number: US-ASTRAZENECA-2020SE47789

PATIENT
  Age: 689 Month
  Sex: Male
  Weight: 56.7 kg

DRUGS (33)
  1. OMEPRAZOLE. [Suspect]
     Active Substance: OMEPRAZOLE
     Indication: GASTRIC DISORDER
     Dosage: GENERIC
     Route: 065
     Dates: start: 20090729, end: 20100527
  2. OMEPRAZOLE. [Suspect]
     Active Substance: OMEPRAZOLE
     Indication: GASTRIC DISORDER
     Dosage: GENERIC
     Route: 065
     Dates: start: 20080108, end: 20080924
  3. LORAZEPAM. [Concomitant]
     Active Substance: LORAZEPAM
     Indication: ANXIETY
     Dates: start: 2019
  4. CARBAMAZEPINE. [Concomitant]
     Active Substance: CARBAMAZEPINE
     Dates: start: 2017
  5. K-DUR [Concomitant]
     Active Substance: POTASSIUM CHLORIDE
  6. LIDOCAINE. [Concomitant]
     Active Substance: LIDOCAINE
  7. LACTIC ACID. [Concomitant]
     Active Substance: LACTIC ACID
  8. OMEPRAZOLE. [Suspect]
     Active Substance: OMEPRAZOLE
     Indication: GASTRIC DISORDER
     Dosage: GENERIC
     Route: 065
     Dates: start: 20110110, end: 20110731
  9. PANTOPRAZOLE [Suspect]
     Active Substance: PANTOPRAZOLE
     Indication: GASTRIC DISORDER
     Dosage: GENERIC
     Route: 065
     Dates: start: 20161201
  10. ACETAMINOPHEN. [Concomitant]
     Active Substance: ACETAMINOPHEN
     Indication: PAIN
     Dates: start: 2017, end: 2019
  11. CEFAZOLIN [Concomitant]
     Active Substance: CEFAZOLIN
  12. PANTOPRAZOLE [Suspect]
     Active Substance: PANTOPRAZOLE
     Indication: GASTRIC DISORDER
     Dosage: GENERIC
     Route: 065
     Dates: start: 201612, end: 201802
  13. ZOSYN [Concomitant]
     Active Substance: PIPERACILLIN SODIUM\TAZOBACTAM SODIUM
  14. BACTRIM [Concomitant]
     Active Substance: SULFAMETHOXAZOLE\TRIMETHOPRIM
     Indication: INFECTION
     Dates: start: 2016, end: 2018
  15. PHENYTOIN. [Concomitant]
     Active Substance: PHENYTOIN
     Dates: start: 2018
  16. MAGNESIUM [Concomitant]
     Active Substance: MAGNESIUM
  17. ONDANSETRON [Concomitant]
     Active Substance: ONDANSETRON
  18. SODIUM CHLORIDE. [Concomitant]
     Active Substance: SODIUM CHLORIDE
  19. AMIDATE [Concomitant]
     Active Substance: ETOMIDATE
  20. ROCURONIUM [Concomitant]
     Active Substance: ROCURONIUM BROMIDE
  21. HEPARIN [Concomitant]
     Active Substance: HEPARIN SODIUM
  22. OMEPRAZOLE. [Suspect]
     Active Substance: OMEPRAZOLE
     Indication: GASTRIC DISORDER
     Dosage: GENERIC
     Route: 065
     Dates: start: 200801, end: 201107
  23. SUCRALFATE. [Concomitant]
     Active Substance: SUCRALFATE
  24. ASPIRIN. [Concomitant]
     Active Substance: ASPIRIN
  25. IOPAMIDOL [Concomitant]
     Active Substance: IOPAMIDOL
  26. DEXTROSE. [Concomitant]
     Active Substance: DEXTROSE
  27. FENTANYL CITRATE. [Concomitant]
     Active Substance: FENTANYL CITRATE
     Dates: start: 2017
  28. PEPCID [Concomitant]
     Active Substance: FAMOTIDINE
  29. PHOSPHORUS [Concomitant]
     Active Substance: PHOSPHORUS
  30. OMEPRAZOLE. [Suspect]
     Active Substance: OMEPRAZOLE
     Indication: GASTRIC DISORDER
     Dosage: GENERIC
     Route: 065
     Dates: start: 20100614, end: 20101113
  31. CARBAMAZEPINE. [Concomitant]
     Active Substance: CARBAMAZEPINE
     Dates: start: 2018
  32. MORPHINE [Concomitant]
     Active Substance: MORPHINE
  33. SERTRALINE [Concomitant]
     Active Substance: SERTRALINE HYDROCHLORIDE

REACTIONS (1)
  - Adenocarcinoma gastric [Not Recovered/Not Resolved]

NARRATIVE: CASE EVENT DATE: 201812
